FAERS Safety Report 7708086-3 (Version None)
Quarter: 2011Q3

REPORT INFORMATION
  Report Type: 
  Country: None (occurrence: None)
  Receive Date: 20110825
  Receipt Date: 20110818
  Transmission Date: 20111222
  Serious: Yes (Hospitalization, Other)
  Sender: FDA-Public Use
  Company Number: NL-BIOGENIDEC-2011BI028012

PATIENT
  Age: 31 Year
  Sex: Male

DRUGS (5)
  1. TYSABRI [Suspect]
     Indication: RELAPSING-REMITTING MULTIPLE SCLEROSIS
     Route: 042
     Dates: start: 20080122
  2. FERROGRADUMET [Concomitant]
  3. VESICARE [Concomitant]
  4. SYMMETREL [Concomitant]
  5. FURADANTIN [Concomitant]

REACTIONS (1)
  - CONVULSION [None]
